FAERS Safety Report 4542198-0 (Version None)
Quarter: 2004Q4

REPORT INFORMATION
  Report Type: 
  Country: None (occurrence: None)
  Receive Date: 20041227
  Receipt Date: 20041215
  Transmission Date: 20050328
  Serious: Yes (Other)
  Sender: FDA-Public Use
  Company Number: 210729

PATIENT
  Sex: Female

DRUGS (5)
  1. MABTHERA(RITUXIMAB) CONC FOR SOLUTION FOR INFUSION [Suspect]
     Indication: LYMPHOMA
     Dosage: 500 MG, 1/MONTH, INTRAVENOUS
     Route: 042
     Dates: start: 20040901
  2. CYCLOPHOSPHAMIDE [Suspect]
     Indication: LYMPHOMA
     Dosage: 1200 MG, 1/MONTH, INTRAVENOUS
     Route: 042
     Dates: start: 20040901
  3. DOXORUBICIN(DOXORUBICIN, DOXORUBICIN HYDROCHLORIDE) [Suspect]
     Indication: LYMPHOMA
     Dosage: 50 MG, 1/MONTH, INTRAVENOUS
     Route: 042
     Dates: start: 20040901
  4. VINCRISTINE [Suspect]
     Indication: LYMPHOMA
     Dosage: 5 MG, 1/MONTH, INTRAVENOUS
     Route: 042
     Dates: start: 20040901
  5. PREDNISONE [Suspect]
     Indication: LYMPHOMA
     Dosage: 50 MG, 1/MONTH, INTRAVENOUS
     Route: 042
     Dates: start: 20040901

REACTIONS (3)
  - BLINDNESS UNILATERAL [None]
  - OPTIC NERVE DISORDER [None]
  - VISUAL ACUITY REDUCED [None]
